FAERS Safety Report 13588830 (Version 1)
Quarter: 2017Q2

REPORT INFORMATION
  Report Type: Spontaneous
  Country: US (occurrence: US)
  Receive Date: 20170529
  Receipt Date: 20170529
  Transmission Date: 20170830
  Serious: Yes (Hospitalization)
  Sender: FDA-Public Use
  Company Number: US-STRIDES ARCOLAB LIMITED-2016SP018998

PATIENT

DRUGS (3)
  1. NEVIRAPINE. [Suspect]
     Active Substance: NEVIRAPINE
     Indication: PROPHYLAXIS AGAINST HIV INFECTION
     Dosage: 200 MG, QD
  2. ZIDOVUDINE. [Concomitant]
     Active Substance: ZIDOVUDINE
     Indication: PROPHYLAXIS AGAINST HIV INFECTION
     Dosage: UNK
  3. LAMIVUDINE. [Concomitant]
     Active Substance: LAMIVUDINE
     Indication: PROPHYLAXIS AGAINST HIV INFECTION
     Dosage: UNK

REACTIONS (3)
  - Off label use [Unknown]
  - Skin toxicity [Recovered/Resolved]
  - Stevens-Johnson syndrome [Recovered/Resolved]
